FAERS Safety Report 5136946-9 (Version None)
Quarter: 2006Q4

REPORT INFORMATION
  Report Type: 
  Country: None (occurrence: None)
  Receive Date: 20061023
  Receipt Date: 20060814
  Transmission Date: 20070319
  Serious: Yes (Other)
  Sender: FDA-Public Use
  Company Number: CHNY2005AU03012

PATIENT
  Age: 39 Year
  Sex: Female

DRUGS (1)
  1. ALPHAPHARM QUITX [Suspect]
     Dosage: 21 MG, TRANSDERMAL
     Route: 062
     Dates: start: 20040318

REACTIONS (6)
  - CONDITION AGGRAVATED [None]
  - CONTUSION [None]
  - DERMATITIS [None]
  - OEDEMA PERIPHERAL [None]
  - PAIN IN EXTREMITY [None]
  - SWELLING FACE [None]
